FAERS Safety Report 7512470-0 (Version None)
Quarter: 2011Q2

REPORT INFORMATION
  Report Type: 
  Country: None (occurrence: None)
  Receive Date: 20110531
  Receipt Date: 20110520
  Transmission Date: 20111010
  Serious: No
  Sender: FDA-Public Use
  Company Number: JP-ASTRAZENECA-2010SE46808

PATIENT
  Age: 50 Year
  Sex: Female
  Weight: 167 kg

DRUGS (3)
  1. ZOLADEX [Suspect]
     Indication: BREAST CANCER
     Route: 058
     Dates: start: 20100908, end: 20100930
  2. LEVOTHYROXINE SODIUM [Concomitant]
     Indication: THYROID CANCER
     Route: 048
     Dates: start: 20100813
  3. NOLVADEX [Suspect]
     Indication: BREAST CANCER
     Route: 048
     Dates: start: 20100908, end: 20100930

REACTIONS (1)
  - TOXIC SKIN ERUPTION [None]
